FAERS Safety Report 15943195 (Version 5)
Quarter: 2025Q4

REPORT INFORMATION
  Report Type: Spontaneous
  Country: EU (occurrence: EU)
  Receive Date: 20190210
  Receipt Date: 20251110
  Transmission Date: 20260117
  Serious: Yes (Death, Other)
  Sender: NOVARTIS
  Company Number: PHHY2019PL030213

PATIENT
  Age: 29 Year
  Sex: Female

DRUGS (9)
  1. CYCLOSPORINE [Suspect]
     Active Substance: CYCLOSPORINE
     Indication: Immunosuppression
     Dosage: 50 MG, QD (25 MILLIGRAM, TWO TIMES A DAY, GRADUAL DOSE ESCALATION)
     Route: 048
  2. MYCOPHENOLATE MOFETIL [Suspect]
     Active Substance: MYCOPHENOLATE MOFETIL
     Indication: Immunosuppression
     Dosage: UNK (DRUG WAS WITHDRAWN AT SIROLIMUS INITIATION)
     Route: 065
  3. PREDNISOLONE [Suspect]
     Active Substance: PREDNISOLONE
     Indication: Immunosuppression
     Dosage: UNK
     Route: 065
  4. PREDNISOLONE [Suspect]
     Active Substance: PREDNISOLONE
     Dosage: 5 MG (5 MILLIGRAM, DAILY, LOW DOSE)
     Route: 065
  5. SIROLIMUS [Suspect]
     Active Substance: SIROLIMUS
     Indication: Immunosuppressant drug therapy
     Dosage: UNK (ON POST-OPERATIVE DAY 32 DRUG WAS COMMENCED AND THE DOSE WAS GRADUALLY AUGMENTED TO TWICE DAILY
     Route: 065
  6. SIROLIMUS [Suspect]
     Active Substance: SIROLIMUS
     Dosage: UNK (ON POST-OPERATIVE DAY 32 DRUG WAS COMMENCED AND THE DOSE WAS GRADUALLY AUGMENTED TO TWICE DAILY
     Route: 065
  7. SIROLIMUS [Suspect]
     Active Substance: SIROLIMUS
     Dosage: 1 MG (POST-OPERATIVE DAY 32 DRUG WAS COMMENCED AND THE DOSE WAS GRADUALLY AUGMENTED TO TWICE DAILY)
     Route: 065
  8. SIROLIMUS [Suspect]
     Active Substance: SIROLIMUS
     Dosage: 2 MG, QD (1 MILLIGRAM, TWO TIMES A DAY, (GRADUALLY AUGMENTED TO TWICE DAILY))
     Route: 065
  9. THYMOCYTE IMMUNE GLOBULIN NOS [Suspect]
     Active Substance: THYMOCYTE IMMUNE GLOBULIN NOS
     Indication: Immunosuppressant drug therapy
     Dosage: UNK
     Route: 065

REACTIONS (3)
  - Pneumonia [Fatal]
  - Respiratory failure [Unknown]
  - Catheter site infection [Unknown]
